FAERS Safety Report 13836325 (Version 8)
Quarter: 2017Q4

REPORT INFORMATION
  Report Type: Report from Study
  Country: BR (occurrence: BR)
  Receive Date: 20170804
  Receipt Date: 20171110
  Transmission Date: 20180320
  Serious: Yes (Other)
  Sender: FDA-Public Use
  Company Number: PHHY2017BR113601

PATIENT
  Age: 57 Year
  Sex: Female
  Weight: 67.8 kg

DRUGS (3)
  1. COSENTYX [Suspect]
     Active Substance: SECUKINUMAB
     Dosage: 300 MG, QMO
     Route: 058
     Dates: start: 201708
  2. COSENTYX [Suspect]
     Active Substance: SECUKINUMAB
     Indication: PSORIATIC ARTHROPATHY
     Dosage: 300 MG, QMO
     Route: 058
     Dates: start: 20170609
  3. COSENTYX [Suspect]
     Active Substance: SECUKINUMAB
     Indication: PSORIASIS
     Dosage: 300 MG, QW
     Route: 058
     Dates: start: 20170314

REACTIONS (12)
  - Pain in jaw [Unknown]
  - Skin irritation [Not Recovered/Not Resolved]
  - Malaise [Unknown]
  - Psoriasis [Not Recovered/Not Resolved]
  - Pain [Unknown]
  - Influenza [Unknown]
  - Psoriatic arthropathy [Unknown]
  - Myocardial ischaemia [Unknown]
  - Dizziness [Unknown]
  - Erythema [Unknown]
  - Cough [Unknown]
  - Vomiting [Unknown]

NARRATIVE: CASE EVENT DATE: 20170531
